FAERS Safety Report 12744236 (Version 1)
Quarter: 2016Q3

REPORT INFORMATION
  Report Type: Spontaneous
  Country: CA (occurrence: CA)
  Receive Date: 20160914
  Receipt Date: 20160914
  Transmission Date: 20161109
  Serious: Yes (Other)
  Sender: FDA-Public Use
  Company Number: CA-GILEAD-2016-0232461

PATIENT
  Age: 40 Year
  Sex: Male

DRUGS (1)
  1. HARVONI [Suspect]
     Active Substance: LEDIPASVIR\SOFOSBUVIR
     Indication: HEPATITIS C
     Route: 065

REACTIONS (9)
  - Muscle twitching [Unknown]
  - Arthralgia [Recovered/Resolved]
  - Anxiety [Unknown]
  - Irritability [Unknown]
  - Visual perseveration [Unknown]
  - Visual impairment [Unknown]
  - Vitreous detachment [Unknown]
  - Feeling abnormal [Unknown]
  - Depression [Unknown]
